FAERS Safety Report 9751834 (Version 2)
Quarter: 2013Q4

REPORT INFORMATION
  Report Type: Spontaneous
  Country: JP (occurrence: JP)
  Receive Date: 20131213
  Receipt Date: 20131220
  Transmission Date: 20140711
  Serious: Yes (Other)
  Sender: FDA-Public Use
  Company Number: JP-AMGEN-JPNSP2013086896

PATIENT
  Sex: Female

DRUGS (1)
  1. PRALIA [Suspect]
     Indication: OSTEOPOROSIS
     Dosage: ONCE
     Route: 065

REACTIONS (1)
  - Osteonecrosis of jaw [Unknown]
